FAERS Safety Report 6677291-X (Version None)
Quarter: 2010Q2

REPORT INFORMATION
  Report Type: 
  Country: None (occurrence: None)
  Receive Date: 20100412
  Receipt Date: 20100408
  Transmission Date: 20101027
  Serious: Yes (Other)
  Sender: FDA-Public Use
  Company Number: US-ROXANE LABORATORIES, INC.-2010-RO-00393RO

PATIENT
  Age: 8 Year
  Sex: Female

DRUGS (3)
  1. LAMOTRIGINE [Suspect]
     Indication: GRAND MAL CONVULSION
     Dosage: 15 MG
  2. LEVETIRACETAM [Suspect]
     Indication: GRAND MAL CONVULSION
  3. VALPROATE SODIUM [Suspect]
     Indication: GRAND MAL CONVULSION

REACTIONS (3)
  - AGGRESSION [None]
  - PSYCHOMOTOR HYPERACTIVITY [None]
  - SELF INJURIOUS BEHAVIOUR [None]
